FAERS Safety Report 20542562 (Version 2)
Quarter: 2022Q1

REPORT INFORMATION
  Report Type: Spontaneous
  Country: JP (occurrence: JP)
  Receive Date: 20220302
  Receipt Date: 20220314
  Transmission Date: 20220423
  Serious: Yes (Death, Other)
  Sender: FDA-Public Use
  Company Number: JP-OTSUKA-2019_040093

PATIENT
  Age: 7 Decade
  Sex: Male

DRUGS (7)
  1. ARIPIPRAZOLE [Suspect]
     Active Substance: ARIPIPRAZOLE
     Indication: Mania
     Dosage: 24 MG, QD
     Route: 048
     Dates: start: 201901, end: 201903
  2. ARIPIPRAZOLE [Suspect]
     Active Substance: ARIPIPRAZOLE
     Indication: Cognitive disorder
  3. ZOTEPINE [Suspect]
     Active Substance: ZOTEPINE
     Indication: Product used for unknown indication
     Dosage: 100 MG, QD
     Route: 048
     Dates: start: 201901, end: 201903
  4. ARDEPHYLLIN [THEOPHYLLINE] [Concomitant]
     Indication: Sleep apnoea syndrome
     Dosage: 100MG, UNK
     Route: 065
  5. PENICILLIN G PROCAINE [Concomitant]
     Active Substance: PENICILLIN G PROCAINE
     Indication: Neurosyphilis
     Dosage: 24 MILLION UNITS, QD
     Route: 042
  6. AMOXICILLIN TRIHYDRATE [Concomitant]
     Active Substance: AMOXICILLIN
     Indication: Neurosyphilis
     Dosage: 3000 MG, QD
     Route: 048
  7. PROBENECID [Concomitant]
     Active Substance: PROBENECID
     Indication: Neurosyphilis
     Dosage: 1500 MG, QD
     Route: 048

REACTIONS (7)
  - Altered state of consciousness [Recovered/Resolved]
  - Small cell lung cancer [Fatal]
  - Sedation complication [Recovered/Resolved]
  - Dysarthria [Recovered/Resolved]
  - Somnolence [Recovered/Resolved]
  - Drug effective for unapproved indication [Unknown]
  - Drug ineffective for unapproved indication [Unknown]

NARRATIVE: CASE EVENT DATE: 20190301
